FAERS Safety Report 6554179-6 (Version None)
Quarter: 2010Q1

REPORT INFORMATION
  Report Type: 
  Country: None (occurrence: None)
  Receive Date: 20100127
  Receipt Date: 20100119
  Transmission Date: 20100710
  Serious: Yes (Hospitalization)
  Sender: FDA-Public Use
  Company Number: US-MILLENNIUM PHARMACEUTICALS, INC.-2010-00875

PATIENT
  Sex: Female
  Weight: 106 kg

DRUGS (12)
  1. VELCADE [Suspect]
     Indication: AMYLOIDOSIS
     Dosage: 1.0 MG/M2, CYCLIC
     Route: 042
     Dates: start: 20090430, end: 20091014
  2. DEXAMETHASONE [Suspect]
     Indication: AMYLOIDOSIS
     Dosage: 20 MG, CYCLIC
     Route: 048
     Dates: start: 20090430, end: 20091112
  3. MELPHALAN HYDROCHLORIDE [Suspect]
     Indication: AMYLOIDOSIS
     Dosage: 7 MG/M2, CYCLIC
     Route: 048
     Dates: start: 20090430, end: 20091010
  4. COREG [Concomitant]
     Indication: DRUG USE FOR UNKNOWN INDICATION
     Dosage: 3.125 MG, BID
  5. LASIX [Concomitant]
     Indication: DRUG USE FOR UNKNOWN INDICATION
     Dosage: 40 MG, BID
     Route: 048
  6. LANTUS [Concomitant]
     Indication: TYPE 1 DIABETES MELLITUS
     Dosage: UNK
     Route: 058
  7. NOVOLOG [Concomitant]
     Indication: TYPE 1 DIABETES MELLITUS
     Dosage: UNK
  8. AMARYL [Concomitant]
     Indication: TYPE 1 DIABETES MELLITUS
     Dosage: 4 MG, BID
     Route: 048
  9. ACYCLOVIR [Concomitant]
     Indication: DRUG USE FOR UNKNOWN INDICATION
     Dosage: 400 MG, BID
     Route: 048
     Dates: start: 20091007
  10. ATIVAN [Concomitant]
     Indication: INSOMNIA
     Dosage: 0.5 MG, PRN
     Route: 048
  11. OMEPRAZOLE [Concomitant]
     Indication: DRUG USE FOR UNKNOWN INDICATION
     Dosage: 20 MG, PRN
     Route: 048
  12. ALDACTONE [Concomitant]
     Indication: DRUG USE FOR UNKNOWN INDICATION
     Dosage: 25 MG, QD
     Route: 048

REACTIONS (1)
  - CELLULITIS [None]
